FAERS Safety Report 15797020 (Version 1)
Quarter: 2019Q1

REPORT INFORMATION
  Report Type: Spontaneous
  Country: CA (occurrence: CA)
  Receive Date: 20190108
  Receipt Date: 20190108
  Transmission Date: 20190417
  Serious: Yes (Other)
  Sender: FDA-Public Use
  Company Number: CA-TEVA-2019-CA-995450

PATIENT
  Age: 69 Year
  Sex: Female

DRUGS (2)
  1. CEFAZOLIN [Concomitant]
     Active Substance: CEFAZOLIN
     Dosage: 4 GRAM DAILY;
     Route: 042
  2. CIPROFLOXACIN. [Suspect]
     Active Substance: CIPROFLOXACIN
     Indication: PSEUDOMONAS INFECTION
     Dosage: 800 MILLIGRAM DAILY;
     Route: 042

REACTIONS (13)
  - Dysarthria [Recovered/Resolved]
  - Echopraxia [Recovered/Resolved]
  - Automatism [Recovered/Resolved]
  - Gait disturbance [Recovered/Resolved]
  - Tic [Recovered/Resolved]
  - Tremor [Recovered/Resolved]
  - Visual field defect [Recovered/Resolved]
  - Grimacing [Recovered/Resolved]
  - Neurotoxicity [Recovered/Resolved]
  - Decorticate posture [Recovered/Resolved]
  - Echolalia [Recovered/Resolved]
  - Extensor plantar response [Recovered/Resolved]
  - Chorea [Recovered/Resolved]
